FAERS Safety Report 9232158 (Version 6)
Quarter: 2014Q2

REPORT INFORMATION
  Report Type: Spontaneous
  Country: US (occurrence: US)
  Receive Date: 20130415
  Receipt Date: 20140527
  Transmission Date: 20141212
  Serious: Yes (Other)
  Sender: FDA-Public Use
  Company Number: US-PFIZER INC-2013113153

PATIENT
  Age: 51 Year
  Sex: Female
  Weight: 46.7 kg

DRUGS (5)
  1. LEVOXYL [Suspect]
     Indication: AUTOIMMUNE THYROIDITIS
     Dosage: 50 UG, UNK
  2. LEVOXYL [Suspect]
     Indication: THYROID DISORDER
     Dosage: 25 UG, UNK
  3. LEVOXYL [Suspect]
     Dosage: 75 UG, UNK
  4. LEVOXYL [Suspect]
     Dosage: 100 UG, UNK
  5. LEVOXYL [Suspect]
     Dosage: 125 UG, 1X/DAY

REACTIONS (7)
  - Product quality issue [Unknown]
  - Thyroiditis [Unknown]
  - Throat tightness [Unknown]
  - Dyspnoea [Unknown]
  - Chills [Unknown]
  - Drug intolerance [Unknown]
  - Drug ineffective [Unknown]
